FAERS Safety Report 9248940 (Version 2)
Quarter: 2013Q2

REPORT INFORMATION
  Report Type: Spontaneous
  Country: SI (occurrence: SI)
  Receive Date: 20130423
  Receipt Date: 20130507
  Transmission Date: 20140414
  Serious: Yes (Life-Threatening, Hospitalization, Disabling, Other)
  Sender: FDA-Public Use
  Company Number: SI-AMGEN-SVNSP2013026039

PATIENT
  Age: 64 Year
  Sex: Female
  Weight: 77 kg

DRUGS (3)
  1. PROLIA [Suspect]
     Indication: OSTEOPOROSIS
     Dosage: UNK UNK, Q6MO
     Dates: start: 20110725, end: 20130211
  2. CALCIUM CARBONATE [Concomitant]
     Indication: OSTEOPOROSIS
     Dosage: 1 G, QD
     Route: 048
     Dates: start: 20110725
  3. PLIVIT D3 [Concomitant]
     Indication: OSTEOPOROSIS
     Dosage: 35 DROPS, QD
     Route: 048
     Dates: start: 20110725

REACTIONS (8)
  - Cerebral infarction [Recovered/Resolved]
  - Iron deficiency anaemia [Recovered/Resolved]
  - Hepatic neoplasm [Recovered/Resolved]
  - Cerebellar ischaemia [Recovering/Resolving]
  - Hiatus hernia [Unknown]
  - Helicobacter test positive [Unknown]
  - Gastritis [Unknown]
  - Hypercholesterolaemia [Unknown]
